FAERS Safety Report 6657220-5 (Version None)
Quarter: 2010Q1

REPORT INFORMATION
  Report Type: 
  Country: None (occurrence: None)
  Receive Date: 20100317
  Receipt Date: 20091211
  Transmission Date: 20100710
  Serious: No
  Sender: FDA-Public Use
  Company Number: DSA_41688_2009

PATIENT
  Sex: Female

DRUGS (4)
  1. XENAZINE [Suspect]
     Indication: HUNTINGTON'S CHOREA
     Dosage: 12.5 MG BID
     Dates: start: 20090810
  2. DEPAKOTE [Concomitant]
  3. LEXAPRO [Concomitant]
  4. SEROQUEL [Concomitant]

REACTIONS (1)
  - SOMNOLENCE [None]
